FAERS Safety Report 17019419 (Version 1)
Quarter: 2019Q4

REPORT INFORMATION
  Report Type: Spontaneous
  Country: MX (occurrence: MX)
  Receive Date: 20191112
  Receipt Date: 20191112
  Transmission Date: 20200122
  Serious: Yes (Hospitalization)
  Sender: FDA-Public Use
  Company Number: MX-VIFOR (INTERNATIONAL) INC.-VIT-2019-12675

PATIENT
  Age: 59 Year
  Sex: Female

DRUGS (1)
  1. MIRCERA [Suspect]
     Active Substance: METHOXY POLYETHYLENE GLYCOL-EPOETIN BETA
     Indication: NEPHROGENIC ANAEMIA
     Route: 058

REACTIONS (5)
  - Decreased immune responsiveness [Unknown]
  - Asthenia [Unknown]
  - Pneumonia [Recovered/Resolved]
  - Inability to afford medication [Unknown]
  - Feeling abnormal [Unknown]

NARRATIVE: CASE EVENT DATE: 201906
